FAERS Safety Report 9154710 (Version 1)
Quarter: 2013Q1

REPORT INFORMATION
  Report Type: Spontaneous
  Country: US (occurrence: None)
  Receive Date: 20130308
  Receipt Date: 20130308
  Transmission Date: 20140127
  Serious: Yes (Death)
  Sender: FDA-Public Use
  Company Number: None

PATIENT
  Age: 86 Year
  Sex: Male

DRUGS (2)
  1. LUCENTIS [Suspect]
     Indication: AGE-RELATED MACULAR DEGENERATION
     Dosage: 1 DOSE EVERY 4 WKS INTRAOCULAR
     Dates: start: 20110621, end: 20120207
  2. EYLEA [Suspect]
     Indication: AGE-RELATED MACULAR DEGENERATION
     Dosage: 1 DOSE EVERY 4-8 WKS INTRAOCULAR
     Dates: start: 20120329, end: 20121203

REACTIONS (1)
  - Death [None]
